FAERS Safety Report 15297274 (Version 1)
Quarter: 2018Q3

REPORT INFORMATION
  Report Type: Spontaneous
  Country: AU (occurrence: AU)
  Receive Date: 20180820
  Receipt Date: 20180820
  Transmission Date: 20181010
  Serious: Yes (Other)
  Sender: FDA-Public Use
  Company Number: PHHY2018AU072983

PATIENT
  Age: 51 Year
  Sex: Female

DRUGS (2)
  1. PERINDOPRIL SANDOZ [Suspect]
     Active Substance: PERINDOPRIL
     Indication: PRODUCT USED FOR UNKNOWN INDICATION
     Dosage: UNK
     Route: 065
  2. BISOPROLOL SANDOZ [Suspect]
     Active Substance: BISOPROLOL
     Indication: PRODUCT USED FOR UNKNOWN INDICATION
     Dosage: UNK
     Route: 065

REACTIONS (8)
  - Subclavian vein stenosis [Unknown]
  - Cardiomyopathy [Unknown]
  - Atrioventricular block [Unknown]
  - Ejection fraction decreased [Unknown]
  - Disease progression [Unknown]
  - Aortic stenosis [Unknown]
  - Left ventricular dysfunction [Unknown]
  - Coronary artery disease [Unknown]
